FAERS Safety Report 8525702-7 (Version None)
Quarter: 2012Q3

REPORT INFORMATION
  Report Type: 
  Country: None (occurrence: None)
  Receive Date: 20120720
  Receipt Date: 20120702
  Transmission Date: 20120928
  Serious: Yes (Life-Threatening, Hospitalization, Disabling, Other)
  Sender: FDA-Public Use
  Company Number: US-009507513-1206USA01568

PATIENT

DRUGS (14)
  1. NAPROXEN SODIUM [Suspect]
  2. FOSAMAX [Suspect]
     Indication: ABDOMINAL PAIN UPPER
     Dosage: UNK UNK, QW
     Route: 048
     Dates: start: 20090405
  3. PROTONIX [Concomitant]
     Indication: ABDOMINAL PAIN UPPER
     Dosage: UNK UNK, QD
     Dates: start: 20090201
  4. LEVOTIROXINA S.O [Concomitant]
     Indication: HYPOTHYROIDISM
     Dosage: UNK UNK, QD
     Dates: start: 19990101
  5. XANAX [Concomitant]
     Indication: ANXIETY
  6. VITAMIN D (UNSPECIFIED) [Concomitant]
     Indication: OSTEOPENIA
     Dosage: UNK UNK, QD
     Dates: start: 20090401
  7. CAPTOPRIL [Concomitant]
     Indication: RENAL IMPAIRMENT
  8. CALCIUM (UNSPECIFIED) [Concomitant]
     Indication: OSTEOPENIA
     Dosage: UNK UNK, QD
     Dates: start: 20090401
  9. CAPTOPRIL [Concomitant]
     Indication: BLOOD PRESSURE
     Dosage: UNK UNK, QD
     Dates: start: 19990101
  10. EFFEXOR [Concomitant]
     Indication: ANXIETY
     Dosage: UNK UNK, QD
     Dates: start: 20010101
  11. ASPIRIN [Concomitant]
     Indication: PROPHYLAXIS
     Dosage: UNK UNK, QD
  12. EFFEXOR [Concomitant]
     Indication: DEPRESSION
  13. VITAMINS (UNSPECIFIED) [Concomitant]
     Dosage: UNK UNK, QD
  14. INSULIN [Concomitant]
     Indication: DIABETES MELLITUS

REACTIONS (7)
  - CHOLECYSTITIS ACUTE [None]
  - UNDERDOSE [None]
  - HAEMOLYTIC URAEMIC SYNDROME [None]
  - THROMBOTIC THROMBOCYTOPENIC PURPURA [None]
  - NEPHRITIS [None]
  - ABDOMINAL DISCOMFORT [None]
  - ADVERSE EVENT [None]
